FAERS Safety Report 6817668-2 (Version None)
Quarter: 2010Q3

REPORT INFORMATION
  Report Type: 
  Country: None (occurrence: None)
  Receive Date: 20100706
  Receipt Date: 20100625
  Transmission Date: 20110219
  Serious: Yes (Life-Threatening, Hospitalization, Disabling)
  Sender: FDA-Public Use
  Company Number: JP-PFIZER INC-2010082559

PATIENT
  Age: 58 Year
  Sex: Male
  Weight: 55 kg

DRUGS (9)
  1. SUNITINIB MALATE [Suspect]
     Indication: RENAL CELL CARCINOMA
     Dosage: 50 MG, 1X/DAY
     Route: 048
     Dates: start: 20090818, end: 20100102
  2. GRAN [Concomitant]
     Dosage: 7.5 MG, 1X/DAY
     Route: 058
     Dates: start: 20090918, end: 20090918
  3. FERROMIA [Concomitant]
     Dosage: 100 MG, 2X/DAY
     Route: 048
     Dates: end: 20100102
  4. GASLON [Concomitant]
     Dosage: 2 MG, 2X/DAY
     Route: 048
     Dates: end: 20100102
  5. POSTERISAN FORTE [Concomitant]
     Dosage: UNK
     Route: 061
     Dates: start: 20090829
  6. PASTARON [Concomitant]
     Dosage: UNK
     Route: 061
     Dates: start: 20090909
  7. KENALOG [Concomitant]
     Dosage: UNK
     Route: 061
     Dates: start: 20091229
  8. GASTER [Concomitant]
     Dosage: 10 MG, 2X/DAY
     Route: 048
     Dates: start: 20091216
  9. LAC B [Concomitant]
     Dosage: 1 G, 3X/DAY
     Route: 048
     Dates: start: 20091229

REACTIONS (2)
  - ENCEPHALOPATHY [None]
  - PLATELET COUNT DECREASED [None]
